FAERS Safety Report 8707474 (Version 2)
Quarter: 2013Q4

REPORT INFORMATION
  Report Type: Report from Study
  Country: US (occurrence: US)
  Receive Date: 20120804
  Receipt Date: 20131101
  Transmission Date: 20140711
  Serious: No
  Sender: FDA-Public Use
  Company Number: US-009507513-1207USA003315

PATIENT
  Sex: Male
  Weight: 200 kg

DRUGS (7)
  1. VICTRELIS [Suspect]
     Dosage: 200 MG, TID, (EVERY 7-9 HOURS)
     Route: 048
  2. REBETOL [Suspect]
     Dosage: 200 MG, UNK
  3. PEGASYS [Suspect]
  4. AMLODIPINE 10 [Concomitant]
     Dosage: 10 MG, UNK
  5. VITAMINS (UNSPECIFIED) [Concomitant]
  6. METOPROLOL [Concomitant]
     Dosage: 25 MG, ER
  7. LEVEMIR [Concomitant]

REACTIONS (1)
  - Dizziness [Unknown]
